FAERS Safety Report 12465779 (Version 1)
Quarter: 2016Q2

REPORT INFORMATION
  Report Type: Spontaneous
  Country: SE (occurrence: SE)
  Receive Date: 20160614
  Receipt Date: 20160614
  Transmission Date: 20160815
  Serious: Yes (Other)
  Sender: FDA-Public Use
  Company Number: SE-CONCORDIA PHARMACEUTICALS INC.-GSH201606-002948

PATIENT
  Age: 2 Year

DRUGS (4)
  1. PARACETAMOL [Suspect]
     Active Substance: ACETAMINOPHEN
  2. SEVOFLURANE. [Suspect]
     Active Substance: SEVOFLURANE
  3. ATROPINE SULPHATE [Suspect]
     Active Substance: ATROPINE SULFATE
  4. CLONIDINE. [Suspect]
     Active Substance: CLONIDINE

REACTIONS (3)
  - Bronchospasm [Unknown]
  - Brain injury [Unknown]
  - Laryngospasm [Unknown]
